FAERS Safety Report 13225696 (Version 4)
Quarter: 2017Q2

REPORT INFORMATION
  Report Type: Spontaneous
  Country: JP (occurrence: JP)
  Receive Date: 20170213
  Receipt Date: 20170428
  Transmission Date: 20170830
  Serious: Yes (Hospitalization)
  Sender: FDA-Public Use
  Company Number: JP-GLAXOSMITHKLINE-JP2017JPN009113

PATIENT
  Age: 21 Year
  Sex: Female

DRUGS (3)
  1. LAMICTAL [Suspect]
     Active Substance: LAMOTRIGINE
     Indication: BIPOLAR DISORDER
     Dosage: 25 MG, 1D
     Route: 048
     Dates: start: 20161223, end: 20161227
  2. LAMICTAL [Suspect]
     Active Substance: LAMOTRIGINE
     Dosage: 50 MG, 1D
     Route: 048
     Dates: start: 20170115, end: 20170115
  3. LAMICTAL [Suspect]
     Active Substance: LAMOTRIGINE
     Dosage: 50 MG, QD
     Route: 048
     Dates: start: 20161228, end: 20161231

REACTIONS (14)
  - Pyrexia [Recovered/Resolved]
  - Drug eruption [Recovered/Resolved]
  - Viral rash [Recovered/Resolved]
  - Drug eruption [Recovered/Resolved]
  - Cheilitis [Recovered/Resolved]
  - Erythema [Recovering/Resolving]
  - Conjunctival hyperaemia [Recovered/Resolved]
  - Myalgia [Recovered/Resolved]
  - Generalised erythema [Recovering/Resolving]
  - Rash [Recovered/Resolved]
  - Drug titration error [Unknown]
  - Pyrexia [Recovered/Resolved]
  - Headache [Recovered/Resolved]
  - Pigmentation disorder [Recovering/Resolving]

NARRATIVE: CASE EVENT DATE: 20161228
